FAERS Safety Report 20580882 (Version 1)
Quarter: 2022Q1

REPORT INFORMATION
  Report Type: Spontaneous
  Country: RU (occurrence: RU)
  Receive Date: 20220311
  Receipt Date: 20220311
  Transmission Date: 20220424
  Serious: Yes (Life-Threatening, Hospitalization)
  Sender: FDA-Public Use
  Company Number: None

PATIENT
  Age: 16 Year
  Sex: Male
  Weight: 60 kg

DRUGS (2)
  1. FIASP [Suspect]
     Active Substance: INSULIN ASPART
     Indication: Type 1 diabetes mellitus
     Dosage: 120 IU
     Route: 065
     Dates: start: 20211020
  2. FIASP [Suspect]
     Active Substance: INSULIN ASPART
     Dosage: INCREASED UP TO 2-FOLD DOSEUNK
     Route: 065
     Dates: end: 20211207

REACTIONS (3)
  - Insulin resistance [Recovering/Resolving]
  - Injection site pain [Recovering/Resolving]
  - Injection site inflammation [Recovering/Resolving]
